FAERS Safety Report 7055236-0 (Version None)
Quarter: 2010Q4

REPORT INFORMATION
  Report Type: 
  Country: None (occurrence: None)
  Receive Date: 20101021
  Receipt Date: 20101008
  Transmission Date: 20110411
  Serious: Yes (Other)
  Sender: FDA-Public Use
  Company Number: PHFR2010IE01489

PATIENT
  Sex: Male
  Weight: 72 kg

DRUGS (5)
  1. CLOZARIL [Suspect]
     Indication: SCHIZOPHRENIA
     Dosage: 75 MG/DAY
     Route: 048
     Dates: start: 20091214
  2. CLOZARIL [Suspect]
     Dosage: 100 MG/DAY
     Route: 048
     Dates: start: 20100715
  3. CLOZARIL [Suspect]
     Dosage: 25 MG, BID
     Route: 048
     Dates: start: 20100721
  4. VALPROATE SODIUM [Concomitant]
     Indication: AFFECTIVE DISORDER
     Dosage: 1 G, UNK
     Route: 048
  5. SINEMET [Concomitant]
     Indication: PARKINSON'S DISEASE
     Dosage: 450 MG, UNK
     Route: 048

REACTIONS (5)
  - CYANOSIS [None]
  - HYPOTENSION [None]
  - PLATELET COUNT DECREASED [None]
  - TACHYCARDIA [None]
  - VENTRICULAR HYPOKINESIA [None]
